FAERS Safety Report 6064972-4 (Version None)
Quarter: 2009Q1

REPORT INFORMATION
  Report Type: 
  Country: None (occurrence: None)
  Receive Date: 20090203
  Receipt Date: 20090203
  Transmission Date: 20090719
  Serious: Yes (Other)
  Sender: FDA-Public Use
  Company Number: None

PATIENT
  Sex: Female
  Weight: 131.5431 kg

DRUGS (4)
  1. HUMIRA [Suspect]
     Indication: PSORIATIC ARTHROPATHY
     Dosage: 40 MG EVERY OTHER WEEK SQ
     Dates: start: 20080502, end: 20090130
  2. KEFLEX [Concomitant]
  3. DEMADEX [Concomitant]
  4. POTASSIUM CHLORIDE [Concomitant]

REACTIONS (3)
  - BREAST PAIN [None]
  - ERYTHEMA [None]
  - FURUNCLE [None]
